FAERS Safety Report 9749471 (Version 1)
Quarter: 2013Q4

REPORT INFORMATION
  Report Type: Report from Study
  Country: MX (occurrence: MX)
  Receive Date: 20131212
  Receipt Date: 20131212
  Transmission Date: 20140711
  Serious: Yes (Other)
  Sender: FDA-Public Use
  Company Number: PHHY2013MX145611

PATIENT
  Age: 71 Year
  Sex: Male

DRUGS (1)
  1. CO-DIOVAN [Suspect]
     Indication: HYPERTENSION
     Dosage: 1 DF(160/12.5MG), DAILY
     Route: 048
     Dates: end: 201311

REACTIONS (2)
  - Diabetes mellitus [Not Recovered/Not Resolved]
  - Infarction [Unknown]
